FAERS Safety Report 5226362-3 (Version None)
Quarter: 2007Q1

REPORT INFORMATION
  Report Type: 
  Country: None (occurrence: None)
  Receive Date: 20070129
  Receipt Date: 20070123
  Transmission Date: 20070707
  Serious: Yes (Other)
  Sender: FDA-Public Use
  Company Number: S06-USA-03016-01

PATIENT
  Age: 68 Year
  Sex: Female
  Weight: 81.6475 kg

DRUGS (5)
  1. LEVOTHROID [Suspect]
     Indication: HYPOTHYROIDISM
     Dosage: 125 MCG QD PO
     Route: 048
     Dates: start: 20060501, end: 20060701
  2. LEVOTHROID [Suspect]
     Indication: HYPOTHYROIDISM
     Dosage: 125 MCG QD PO
     Route: 048
     Dates: start: 20060801
  3. LEVOTHROID [Suspect]
     Indication: HYPOTHYROIDISM
     Dosage: 125 MCG Q07OD PO
     Route: 048
     Dates: start: 20060701, end: 20060801
  4. LEVOTHROID [Suspect]
     Indication: HYPOTHYROIDISM
     Dosage: 62.5 MG QOD PO
     Route: 048
     Dates: start: 20060701, end: 20060801
  5. LEVOTHROID [Suspect]
     Indication: HYPOTHYROIDISM
     Dosage: 150 MCG QD PO
     Route: 048
     Dates: start: 20040101, end: 20060501

REACTIONS (5)
  - ALOPECIA [None]
  - DRY SKIN [None]
  - FATIGUE [None]
  - GASTROOESOPHAGEAL REFLUX DISEASE [None]
  - WEIGHT INCREASED [None]
